APPROVED DRUG PRODUCT: ZOLPIDEM TARTRATE
Active Ingredient: ZOLPIDEM TARTRATE
Strength: 6.25MG
Dosage Form/Route: TABLET, EXTENDED RELEASE;ORAL
Application: A200266 | Product #001
Applicant: APOTEX INC
Approved: Sep 10, 2013 | RLD: No | RS: No | Type: DISCN